FAERS Safety Report 6283236-7 (Version None)
Quarter: 2009Q3

REPORT INFORMATION
  Report Type: 
  Country: None (occurrence: None)
  Receive Date: 20090722
  Receipt Date: 20090713
  Transmission Date: 20100115
  Serious: Yes (Hospitalization)
  Sender: FDA-Public Use
  Company Number: FABR-1000898

PATIENT
  Age: 47 Year
  Sex: Male
  Weight: 68.7 kg

DRUGS (3)
  1. FABRAZYME [Suspect]
     Indication: FABRY'S DISEASE
     Dosage: 70 MG, Q2W, INTRAVENOUS
     Route: 042
     Dates: start: 20050501
  2. TYLENOL [Concomitant]
  3. BENADRYL [Concomitant]

REACTIONS (7)
  - CARDIAC DISORDER [None]
  - DIALYSIS [None]
  - INTRACRANIAL ANEURYSM [None]
  - MOVEMENT DISORDER [None]
  - PNEUMONIA [None]
  - PULMONARY OEDEMA [None]
  - RENAL FAILURE [None]
